FAERS Safety Report 6453593-7 (Version None)
Quarter: 2009Q4

REPORT INFORMATION
  Report Type: 
  Country: None (occurrence: None)
  Receive Date: 20091117
  Receipt Date: 20091102
  Transmission Date: 20100525
  Serious: Yes (Hospitalization)
  Sender: FDA-Public Use
  Company Number: 2009003375

PATIENT
  Age: 65 Year
  Sex: Male
  Weight: 66.2 kg

DRUGS (5)
  1. ERLOTINIB HYDROCHLORIDE [Suspect]
     Indication: OESOPHAGEAL CARCINOMA
     Dosage: (100 MG),ORAL
     Route: 048
     Dates: start: 20090924
  2. BEVACIZUMAB (INJECTION FOR INFUSION) [Suspect]
     Indication: OESOPHAGEAL CARCINOMA
     Dosage: (15 MG/KG), INTRAVENOUS
     Route: 042
     Dates: start: 20090924
  3. PACLITAXEL [Suspect]
     Indication: OESOPHAGEAL CARCINOMA
     Dosage: (200 MG/M2),INTRAVENOUS
     Route: 042
     Dates: start: 20090924
  4. CARBOPLATIN [Suspect]
     Indication: OESOPHAGEAL CARCINOMA
     Dosage: (5 AUC),INTRAVENOUS
     Route: 042
     Dates: start: 20090924
  5. FLUOROURACIL [Suspect]
     Indication: OESOPHAGEAL CARCINOMA
     Dosage: (225 MG/M2), INTRAVENOUS
     Route: 042
     Dates: start: 20090924

REACTIONS (11)
  - BLOOD CREATINE INCREASED [None]
  - EMPHYSEMA [None]
  - FEBRILE NEUTROPENIA [None]
  - HAEMOGLOBIN DECREASED [None]
  - INTERSTITIAL LUNG DISEASE [None]
  - OEDEMA [None]
  - PLATELET COUNT DECREASED [None]
  - PLEURAL EFFUSION [None]
  - PNEUMONITIS [None]
  - PULMONARY FIBROSIS [None]
  - WHITE BLOOD CELL COUNT DECREASED [None]
